FAERS Safety Report 6981621-9 (Version None)
Quarter: 2010Q3

REPORT INFORMATION
  Report Type: 
  Country: None (occurrence: None)
  Receive Date: 20100914
  Receipt Date: 20090916
  Transmission Date: 20110219
  Serious: No
  Sender: FDA-Public Use
  Company Number: US-PFIZER INC-2009272137

PATIENT
  Sex: Female

DRUGS (5)
  1. LYRICA [Suspect]
     Indication: COMPLEX REGIONAL PAIN SYNDROME
     Dosage: 75 MG, 1X/DAY
     Dates: start: 20090911, end: 20090912
  2. AVALIDE [Concomitant]
     Indication: BLOOD PRESSURE ABNORMAL
     Dosage: UNK
  3. ACIPHEX [Concomitant]
     Dosage: UNK
  4. OMEGA-3 MARINE TRIGLYCERIDES [Concomitant]
     Dosage: UNK
  5. FISH OIL [Concomitant]
     Dosage: UNK

REACTIONS (9)
  - CHEST DISCOMFORT [None]
  - COMPLEX REGIONAL PAIN SYNDROME [None]
  - DIZZINESS [None]
  - DRY MOUTH [None]
  - HEADACHE [None]
  - JOINT SWELLING [None]
  - MALAISE [None]
  - SKIN EXFOLIATION [None]
  - SOMNOLENCE [None]
